FAERS Safety Report 7406528-4 (Version None)
Quarter: 2011Q2

REPORT INFORMATION
  Report Type: 
  Country: None (occurrence: None)
  Receive Date: 20110405
  Receipt Date: 20110405
  Transmission Date: 20111010
  Serious: Yes (Life-Threatening, Hospitalization)
  Sender: FDA-Public Use
  Company Number: None

PATIENT
  Age: 50 Year
  Sex: Male
  Weight: 65.7716 kg

DRUGS (1)
  1. GENERIC MACROBID 100 MG NOT AVAILABLE RIGHT NOW [Suspect]
     Indication: ESCHERICHIA TEST POSITIVE
     Dosage: 100 MG 2X DAILY PO
     Route: 048
     Dates: start: 20100722, end: 20100810

REACTIONS (11)
  - FEELING ABNORMAL [None]
  - CEREBROVASCULAR ACCIDENT [None]
  - DYSSTASIA [None]
  - MENTAL STATUS CHANGES [None]
  - RASH [None]
  - NERVOUS SYSTEM DISORDER [None]
  - HYPERSENSITIVITY [None]
  - ANXIETY [None]
  - ATAXIA [None]
  - MOTOR DYSFUNCTION [None]
  - TRANSIENT ISCHAEMIC ATTACK [None]
